FAERS Safety Report 5347386-1 (Version None)
Quarter: 2007Q2

REPORT INFORMATION
  Report Type: 
  Country: None (occurrence: None)
  Receive Date: 20070507
  Receipt Date: 20060719
  Transmission Date: 20071010
  Serious: Yes (Other)
  Sender: FDA-Public Use
  Company Number: 29070

PATIENT
  Age: 34 Year
  Sex: Female
  Weight: 71.6683 kg

DRUGS (2)
  1. ADRIAMYCIN PFS [Suspect]
     Indication: OSTEOARTHRITIS
     Dosage: 108 MG/IV PUSH X 1
     Route: 042
     Dates: start: 20060705
  2. SYNTHROID [Concomitant]

REACTIONS (3)
  - BURNING SENSATION [None]
  - HYPERHIDROSIS [None]
  - VOMITING [None]
